FAERS Safety Report 5871015-1 (Version None)
Quarter: 2008Q3

REPORT INFORMATION
  Report Type: 
  Country: None (occurrence: None)
  Receive Date: 20080904
  Receipt Date: 20080825
  Transmission Date: 20090109
  Serious: Yes (Other)
  Sender: FDA-Public Use
  Company Number: GB-ABBOTT-08P-167-0472758-00

PATIENT
  Sex: Male

DRUGS (1)
  1. EPILIM [Suspect]
     Indication: MANIA

REACTIONS (3)
  - DRUG LEVEL ABOVE THERAPEUTIC [None]
  - MANIA [None]
  - WEIGHT INCREASED [None]
